FAERS Safety Report 4850339-0 (Version None)
Quarter: 2005Q4

REPORT INFORMATION
  Report Type: 
  Country: None (occurrence: None)
  Receive Date: 20051207
  Receipt Date: 20051207
  Transmission Date: 20060501
  Serious: No
  Sender: FDA-Public Use
  Company Number: None

PATIENT
  Age: 59 Year
  Sex: Male
  Weight: 125.9 kg

DRUGS (1)
  1. MELOXICAM 7.5MG [Suspect]
     Indication: OSTEOARTHRITIS
     Dosage: DAILY
     Dates: start: 20050818, end: 20050925

REACTIONS (4)
  - CHOKING [None]
  - DYSPNOEA [None]
  - FATIGUE [None]
  - PRURITUS [None]
